FAERS Safety Report 17968544 (Version 1)
Quarter: 2020Q3

REPORT INFORMATION
  Report Type: Spontaneous
  Country: FR (occurrence: FR)
  Receive Date: 20200701
  Receipt Date: 20200701
  Transmission Date: 20201103
  Serious: Yes (Life-Threatening, Other)
  Sender: FDA-Public Use
  Company Number: FR-GLAXOSMITHKLINE-FR2020112106

PATIENT
  Age: 57 Year
  Sex: Female
  Weight: 113 kg

DRUGS (2)
  1. ACICLOVIR [Suspect]
     Active Substance: ACYCLOVIR
     Indication: ENCEPHALITIS
     Dosage: 10 MG/KG, TID
     Route: 042
     Dates: start: 20200530, end: 20200603
  2. AMOXICILLIN SODIUM [Suspect]
     Active Substance: AMOXICILLIN SODIUM
     Indication: ENCEPHALITIS
     Dosage: UNK 1 TO 2 G ONCE EVERY 4 TO 6 HOURS
     Route: 042
     Dates: start: 20200530, end: 20200602

REACTIONS (3)
  - Hyperkalaemia [Recovered/Resolved]
  - Overdose [Recovered/Resolved]
  - Acute kidney injury [Recovered/Resolved]

NARRATIVE: CASE EVENT DATE: 202006
